FAERS Safety Report 10615248 (Version 1)
Quarter: 2014Q4

REPORT INFORMATION
  Report Type: Report from Study
  Country: US (occurrence: US)
  Receive Date: 20141201
  Receipt Date: 20141201
  Transmission Date: 20150529
  Serious: Yes (Other)
  Sender: FDA-Public Use
  Company Number: PHEH2014US023809

PATIENT
  Sex: Male
  Weight: 99.77 kg

DRUGS (5)
  1. BACTRIM [Concomitant]
     Active Substance: SULFAMETHOXAZOLE\TRIMETHOPRIM
     Indication: PRODUCT USED FOR UNKNOWN INDICATION
     Route: 065
  2. ALBUTEROL. [Concomitant]
     Active Substance: ALBUTEROL
     Indication: PRODUCT USED FOR UNKNOWN INDICATION
     Route: 065
  3. PROTONIX [Concomitant]
     Active Substance: PANTOPRAZOLE SODIUM
     Indication: PRODUCT USED FOR UNKNOWN INDICATION
     Route: 065
  4. TOBI [Suspect]
     Active Substance: TOBRAMYCIN
     Indication: HETEROTAXIA
     Dosage: 300 MG, BID
     Route: 055
  5. TOBI [Suspect]
     Active Substance: TOBRAMYCIN
     Indication: OFF LABEL USE

REACTIONS (1)
  - Pneumonia [Recovering/Resolving]
